FAERS Safety Report 7545125-7 (Version None)
Quarter: 2011Q2

REPORT INFORMATION
  Report Type: 
  Country: None (occurrence: None)
  Receive Date: 20110610
  Receipt Date: 20110610
  Transmission Date: 20111010
  Serious: Yes (Disabling)
  Sender: FDA-Public Use
  Company Number: None

PATIENT
  Age: 79 Year
  Sex: Male
  Weight: 83.9154 kg

DRUGS (2)
  1. CARDURA [Concomitant]
  2. FLOMAX [Suspect]
     Indication: BENIGN PROSTATIC HYPERPLASIA
     Dosage: .4 MG 1QD PO
     Route: 048

REACTIONS (1)
  - FLOPPY IRIS SYNDROME [None]
